FAERS Safety Report 5635711-3 (Version None)
Quarter: 2008Q1

REPORT INFORMATION
  Report Type: 
  Country: None (occurrence: None)
  Receive Date: 20080223
  Receipt Date: 20080213
  Transmission Date: 20080703
  Serious: Yes (Hospitalization, Other)
  Sender: FDA-Public Use
  Company Number: US-ELI_LILLY_AND_COMPANY-US200801001100

PATIENT
  Sex: Female
  Weight: 95.238 kg

DRUGS (10)
  1. BYETTA [Suspect]
     Dosage: 5 UG, 2/D
     Route: 058
     Dates: start: 20050901, end: 20051101
  2. BYETTA [Suspect]
     Dosage: 10 UG, 2/D
     Route: 058
     Dates: start: 20051101, end: 20070713
  3. BYETTA [Suspect]
     Dosage: 10 UG, 2/D
     Route: 058
     Dates: start: 20070901
  4. LANTUS [Concomitant]
     Dosage: UNK, UNK
     Dates: start: 20040826, end: 20060417
  5. LEVEMIR [Concomitant]
     Dosage: UNK, UNK
     Dates: start: 20060417
  6. QUINAPRIL HCL [Concomitant]
     Indication: HYPERTENSION
     Dates: start: 20040101
  7. LIPITOR [Concomitant]
     Indication: BLOOD CHOLESTEROL INCREASED
     Dates: start: 20050101
  8. GLUCOPHAGE [Concomitant]
     Dosage: 1000 MG, 2/D
     Route: 048
  9. FUROSEMIDE [Concomitant]
     Indication: FLUID RETENTION
  10. POTASSIUM CHLORIDE [Concomitant]

REACTIONS (4)
  - CHOLECYSTITIS INFECTIVE [None]
  - DEHYDRATION [None]
  - RENAL FAILURE [None]
  - WEIGHT DECREASED [None]
